FAERS Safety Report 5249338-9 (Version None)
Quarter: 2007Q1

REPORT INFORMATION
  Report Type: 
  Country: None (occurrence: None)
  Receive Date: 20070223
  Receipt Date: 20070209
  Transmission Date: 20070707
  Serious: Yes (Hospitalization)
  Sender: FDA-Public Use
  Company Number: 2006-150231-NL

PATIENT
  Age: 33 Year
  Sex: Female

DRUGS (1)
  1. ETONOGESTREL (BATCH #: 817735/844123) [Suspect]
     Indication: CONTRACEPTION
     Dosage: DF
     Dates: start: 20061025

REACTIONS (6)
  - ASTHMA [None]
  - ECZEMA [None]
  - IMPLANT SITE ERYTHEMA [None]
  - IMPLANT SITE PAIN [None]
  - IMPLANT SITE SWELLING [None]
  - PYREXIA [None]
